FAERS Safety Report 19631530 (Version 1)
Quarter: 2021Q3

REPORT INFORMATION
  Report Type: Spontaneous
  Country: US (occurrence: US)
  Receive Date: 20210729
  Receipt Date: 20210729
  Transmission Date: 20211014
  Serious: No
  Sender: FDA-Public Use
  Company Number: US-BAYER-2021-172423

PATIENT
  Age: 69 Year
  Sex: Male

DRUGS (2)
  1. NUBEQA [Suspect]
     Active Substance: DAROLUTAMIDE
     Indication: HORMONE-REFRACTORY PROSTATE CANCER
  2. NUBEQA [Suspect]
     Active Substance: DAROLUTAMIDE
     Indication: METASTASIS

REACTIONS (2)
  - Off label use [None]
  - Adverse drug reaction [None]
